FAERS Safety Report 24440925 (Version 2)
Quarter: 2024Q4

REPORT INFORMATION
  Report Type: Report from Study
  Country: US (occurrence: US)
  Receive Date: 20241016
  Receipt Date: 20241017
  Transmission Date: 20250114
  Serious: No
  Sender: ROCHE
  Company Number: US-ROCHE-3378115

PATIENT
  Age: 72 Year
  Sex: Female

DRUGS (3)
  1. HEMLIBRA [Suspect]
     Active Substance: EMICIZUMAB-KXWH
     Indication: Acquired haemophilia
     Dosage: 4 DOSES; DOT: 13/OCT/2023, 18/SEP/2023, 15/AUG/2023, 17/JUL/2023, 29/MAR/2023, 09/NOV/2023, 04/MAR/2
     Route: 065
     Dates: start: 20230815
  2. HEMLIBRA [Suspect]
     Active Substance: EMICIZUMAB-KXWH
     Route: 065
  3. NOVOSEVEN [Concomitant]
     Active Substance: COAGULATION FACTOR VIIA RECOMBINANT HUMAN

REACTIONS (2)
  - Off label use [Unknown]
  - Weight decreased [Unknown]
